FAERS Safety Report 9160354 (Version 1)
Quarter: 2013Q1

REPORT INFORMATION
  Report Type: Spontaneous
  Country: CA (occurrence: None)
  Receive Date: 20130214
  Receipt Date: 20130214
  Transmission Date: 20140127
  Serious: Yes (Life-Threatening)
  Sender: FDA-Public Use
  Company Number: 2013AP002141

PATIENT
  Age: 82 Year
  Sex: Female

DRUGS (11)
  1. APO-CALCITONIN [Suspect]
     Indication: PRODUCT USED FOR UNKNOWN INDICATION
     Route: 045
  2. CALCITONIN [Suspect]
     Indication: PRODUCT USED FOR UNKNOWN INDICATION
     Route: 045
  3. ADVAIR (SERETIDE) [Concomitant]
  4. ELTROXIN (LEVOTHYROXINE SODIUM) [Concomitant]
  5. IRON (IRON) [Concomitant]
  6. MIRAPEX (PRAMIPEXOLE DIHYDROCHLORIDE) [Concomitant]
  7. OMEGA 3 [Concomitant]
  8. SALBUTAMOL (SALUTAMOL) [Concomitant]
  9. SLOW-K (POTASSIUM CHLORIDE) [Concomitant]
  10. VITAMIN C [Concomitant]
  11. XARELTO (RIVAROXABAN) [Concomitant]

REACTIONS (2)
  - Bladder cancer [None]
  - Dysuria [None]
